FAERS Safety Report 9123800 (Version 2)
Quarter: 2013Q1

REPORT INFORMATION
  Report Type: Spontaneous
  Country: MX (occurrence: MX)
  Receive Date: 20130227
  Receipt Date: 20130301
  Transmission Date: 20140127
  Serious: Yes (Other)
  Sender: FDA-Public Use
  Company Number: PHHY2013MX018971

PATIENT
  Age: 81 Year
  Sex: Female

DRUGS (1)
  1. CO-DIOVAN [Suspect]
     Indication: HYPERTENSION
     Dosage: 1 DF DAILY, (160 MG VALS AND 25 MG HCTZ)
     Route: 048
     Dates: start: 2000

REACTIONS (2)
  - Deafness [Not Recovered/Not Resolved]
  - Hypoacusis [Unknown]
